FAERS Safety Report 16936909 (Version 1)
Quarter: 2019Q4

REPORT INFORMATION
  Report Type: Spontaneous
  Country: RS (occurrence: RS)
  Receive Date: 20191018
  Receipt Date: 20191018
  Transmission Date: 20200122
  Serious: Yes (Death)
  Sender: FDA-Public Use
  Company Number: RS-ASTELLAS-2019US041000

PATIENT
  Age: 43 Year
  Sex: Male

DRUGS (10)
  1. STOCRIN [Concomitant]
     Active Substance: EFAVIRENZ
     Indication: HIV INFECTION
     Dosage: UNK UNK, UNKNOWN FREQ.
     Route: 065
  2. KIVEXA [Concomitant]
     Active Substance: ABACAVIR SULFATE\LAMIVUDINE
     Indication: HIV INFECTION
     Dosage: UNK UNK, UNKNOWN FREQ.
     Route: 065
  3. GANCICLOVIR. [Concomitant]
     Active Substance: GANCICLOVIR
     Indication: CYTOMEGALOVIRUS CHORIORETINITIS
     Dosage: UNK UNK, UNKNOWN FREQ.
     Route: 065
  4. ICE                                /06761101/ [Concomitant]
     Indication: DISEASE PROGRESSION
     Dosage: UNK UNK, CYCLIC (2 CYCLES)
     Route: 065
  5. DEXAMETHASONE. [Concomitant]
     Active Substance: DEXAMETHASONE
     Indication: DISEASE PROGRESSION
     Dosage: UNK UNK, CYCLIC (3 CYCLES)
     Route: 065
  6. CYTARABINE. [Concomitant]
     Active Substance: CYTARABINE
     Indication: DISEASE PROGRESSION
     Dosage: UNK UNK, CYCLIC (3 CYCLES)
     Route: 065
  7. MICAFUNGIN. [Suspect]
     Active Substance: MICAFUNGIN SODIUM
     Indication: PROPHYLAXIS
     Route: 042
  8. CISPLATIN. [Concomitant]
     Active Substance: CISPLATIN
     Indication: DISEASE PROGRESSION
     Dosage: UNK UNK, CYCLIC (3 CYCLES)
     Route: 065
  9. SULFAMETHOXAZOL [Concomitant]
     Active Substance: SULFAMETHOXAZOLE
     Indication: PROPHYLAXIS
     Dosage: UNK UNK, UNKNOWN FREQ.
     Route: 065
  10. R CHOP [Concomitant]
     Active Substance: CYCLOPHOSPHAMIDE\DOXORUBICIN\PREDNISONE\RITUXIMAB\VINCRISTINE
     Indication: DIFFUSE LARGE B-CELL LYMPHOMA
     Dosage: UNK UNK, CYCLIC (3 CYCLES)
     Route: 065

REACTIONS (1)
  - Disease progression [Fatal]
